FAERS Safety Report 21873319 (Version 2)
Quarter: 2023Q2

REPORT INFORMATION
  Report Type: Spontaneous
  Country: FR (occurrence: FR)
  Receive Date: 20230117
  Receipt Date: 20230602
  Transmission Date: 20230721
  Serious: Yes (Other)
  Sender: FDA-Public Use
  Company Number: FR-MYLANLABS-2023M1004163

PATIENT
  Sex: Female

DRUGS (4)
  1. CYSTEAMINE [Suspect]
     Active Substance: CYSTEAMINE
     Indication: Cystinosis
     Dosage: UNK
     Route: 065
  2. CYSTEAMINE [Suspect]
     Active Substance: CYSTEAMINE
     Dosage: UNK
     Route: 048
  3. CYSTEAMINE HYDROCHLORIDE [Suspect]
     Active Substance: CYSTEAMINE HYDROCHLORIDE
     Indication: Cystinosis
     Dosage: UNK
     Route: 065
  4. CYSTEAMINE HYDROCHLORIDE [Suspect]
     Active Substance: CYSTEAMINE HYDROCHLORIDE
     Dosage: UNK
     Route: 047

REACTIONS (2)
  - Abortion spontaneous [Recovered/Resolved]
  - Maternal exposure during pregnancy [Unknown]
